FAERS Safety Report 9053813 (Version 1)
Quarter: 2013Q1

REPORT INFORMATION
  Report Type: Spontaneous
  Country: US (occurrence: US)
  Receive Date: 20130207
  Receipt Date: 20130207
  Transmission Date: 20140127
  Serious: Yes (Death)
  Sender: FDA-Public Use
  Company Number: US-GLAXOSMITHKLINE-A1011004A

PATIENT
  Age: 81 Year
  Sex: Male

DRUGS (8)
  1. VOTRIENT [Suspect]
     Indication: THYROID CANCER
     Dosage: 800MG PER DAY
     Route: 048
     Dates: start: 20120516
  2. LEVOTHYROXINE [Concomitant]
  3. TRAVATAN [Concomitant]
  4. ZOCOR [Concomitant]
  5. LOPRESSOR [Concomitant]
  6. COUMADIN [Concomitant]
  7. GABAPENTIN [Concomitant]
  8. TEMODAR [Concomitant]

REACTIONS (1)
  - Death [Fatal]
